FAERS Safety Report 20081353 (Version 1)
Quarter: 2021Q4

REPORT INFORMATION
  Report Type: Spontaneous
  Country: US (occurrence: None)
  Receive Date: 20211116
  Receipt Date: 20211116
  Transmission Date: 20220303
  Serious: Yes (Hospitalization, Disabling)
  Sender: FDA-Public Use
  Company Number: None

PATIENT
  Age: 7 Year
  Sex: Female

DRUGS (6)
  1. EPIDIOLEX [Suspect]
     Active Substance: CANNABIDIOL
     Dosage: FREQUENCY : TWICE A DAY;?
     Route: 048
     Dates: start: 20200218
  2. VALPROIC ACID [Concomitant]
     Active Substance: VALPROIC ACID
  3. LEVOCARNITINE [Suspect]
     Active Substance: LEVOCARNITINE
  4. LAMOTRIGINE [Concomitant]
     Active Substance: LAMOTRIGINE
  5. VITAMIN D NOS [Concomitant]
     Active Substance: VITAMIN D NOS
  6. BUDESONIDE [Concomitant]
     Active Substance: BUDESONIDE

REACTIONS (1)
  - COVID-19 [None]

NARRATIVE: CASE EVENT DATE: 20211031
